FAERS Safety Report 7782599-0 (Version None)
Quarter: 2011Q3

REPORT INFORMATION
  Report Type: 
  Country: None (occurrence: None)
  Receive Date: 20110927
  Receipt Date: 20110927
  Transmission Date: 20111222
  Serious: Yes (Other)
  Sender: FDA-Public Use
  Company Number: None

PATIENT
  Age: 41 Year
  Sex: Female

DRUGS (3)
  1. AZITHROMYCIN [Concomitant]
  2. PREDNISONE [Concomitant]
  3. FLEBOGAMMA [Suspect]
     Indication: BLOOD IMMUNOGLOBULIN G DECREASED
     Dosage: 1 OF 30 GRAMS IV GIVEN
     Route: 042
     Dates: start: 20110629

REACTIONS (4)
  - COUGH [None]
  - PRODUCT SUBSTITUTION ISSUE [None]
  - DYSPNOEA [None]
  - OXYGEN SATURATION DECREASED [None]
